FAERS Safety Report 5101265-3 (Version None)
Quarter: 2006Q3

REPORT INFORMATION
  Report Type: 
  Country: None (occurrence: None)
  Receive Date: 20060911
  Receipt Date: 20060831
  Transmission Date: 20061208
  Serious: Yes (Hospitalization, Other)
  Sender: FDA-Public Use
  Company Number: FR-AVENTIS-200613047FR

PATIENT
  Age: 80 Year
  Sex: Female
  Weight: 70 kg

DRUGS (1)
  1. LOVENOX [Suspect]
     Route: 042

REACTIONS (3)
  - MUSCLE HAEMORRHAGE [None]
  - NECROSIS [None]
  - SKIN GRAFT [None]
